FAERS Safety Report 15545863 (Version 2)
Quarter: 2021Q1

REPORT INFORMATION
  Report Type: Spontaneous
  Country: US (occurrence: US)
  Receive Date: 20181024
  Receipt Date: 20210223
  Transmission Date: 20210419
  Serious: No
  Sender: FDA-Public Use
  Company Number: US-SA-2018SA291629

PATIENT
  Sex: Female

DRUGS (6)
  1. OMEPRAZOLE. [Concomitant]
     Active Substance: OMEPRAZOLE
  2. DILTIAZEM. [Concomitant]
     Active Substance: DILTIAZEM
     Dosage: 10 MG
  3. METFORMIN HCL [Concomitant]
     Active Substance: METFORMIN HYDROCHLORIDE
     Dosage: 20 MG
  4. DUPIXENT [Suspect]
     Active Substance: DUPILUMAB
     Dosage: 300 MG, QOW
     Route: 058
  5. HYDROCHLOROTHIAZIDE;LOSARTAN [Concomitant]
     Active Substance: HYDROCHLOROTHIAZIDE\LOSARTAN
     Dosage: 10 MG
  6. GLIPIZIDE. [Concomitant]
     Active Substance: GLIPIZIDE

REACTIONS (5)
  - Product dose omission issue [Unknown]
  - Skin exfoliation [Unknown]
  - Dry skin [Unknown]
  - Skin haemorrhage [Unknown]
  - Pruritus [Unknown]

NARRATIVE: CASE EVENT DATE: 202102
